FAERS Safety Report 20891990 (Version 2)
Quarter: 2022Q3

REPORT INFORMATION
  Report Type: Report from Study
  Country: US (occurrence: US)
  Receive Date: 20220530
  Receipt Date: 20220917
  Transmission Date: 20221027
  Serious: Yes (Other)
  Sender: FDA-Public Use
  Company Number: US-NOVARTISPH-NVSC2022US121113

PATIENT
  Sex: Male

DRUGS (1)
  1. ENTRESTO [Suspect]
     Active Substance: SACUBITRIL\VALSARTAN
     Indication: Ejection fraction decreased
     Dosage: 50 MG, BID (24/26 MG)
     Route: 048
     Dates: start: 20220115

REACTIONS (4)
  - Renal failure [Unknown]
  - Renal impairment [Unknown]
  - Blood potassium increased [Recovered/Resolved]
  - Off label use [Unknown]
